FAERS Safety Report 5812588-4 (Version None)
Quarter: 2008Q3

REPORT INFORMATION
  Report Type: 
  Country: None (occurrence: None)
  Receive Date: 20080714
  Receipt Date: 20080714
  Transmission Date: 20090109
  Serious: Yes (Life-Threatening, Hospitalization)
  Sender: FDA-Public Use
  Company Number: None

PATIENT
  Age: 76 Year
  Sex: Female
  Weight: 63.5 kg

DRUGS (2)
  1. LEVOFLOXACIN [Suspect]
     Indication: URINARY TRACT INFECTION
     Dosage: 500 MG Q24 HOURS IV
     Route: 042
     Dates: start: 20080707, end: 20080707
  2. LEVOFLOXACIN [Suspect]
     Dosage: 500 MG Q24 HOURS OROPHARINGEAL
     Route: 049
     Dates: start: 20080708, end: 20080710

REACTIONS (1)
  - STATUS EPILEPTICUS [None]
